FAERS Safety Report 20027640 (Version 1)
Quarter: 2021Q4

REPORT INFORMATION
  Report Type: Spontaneous
  Country: US (occurrence: US)
  Receive Date: 20211103
  Receipt Date: 20211103
  Transmission Date: 20220303
  Serious: Yes (Hospitalization, Other)
  Sender: FDA-Public Use
  Company Number: US-MLMSERVICE-20211013-3167014-1

PATIENT
  Age: 68 Year
  Sex: Male

DRUGS (1)
  1. HYDROCHLOROTHIAZIDE [Suspect]
     Active Substance: HYDROCHLOROTHIAZIDE
     Indication: Product used for unknown indication
     Dosage: UNK
     Route: 065

REACTIONS (8)
  - Cardio-respiratory arrest [Recovered/Resolved]
  - Bradyarrhythmia [Recovered/Resolved]
  - Pulseless electrical activity [Recovered/Resolved]
  - Blood osmolarity decreased [Recovered/Resolved]
  - Atrioventricular block [Recovered/Resolved]
  - Ventricular asystole [Recovered/Resolved]
  - Sinus bradycardia [Recovered/Resolved]
  - Hyponatraemia [Recovered/Resolved]
